FAERS Safety Report 7611573-X (Version None)
Quarter: 2011Q3

REPORT INFORMATION
  Report Type: 
  Country: None (occurrence: None)
  Receive Date: 20110715
  Receipt Date: 20110714
  Transmission Date: 20111222
  Serious: Yes (Hospitalization)
  Sender: FDA-Public Use
  Company Number: CL-GLAXOSMITHKLINE-A0936079A

PATIENT
  Age: 40 Year
  Sex: Female

DRUGS (2)
  1. SEROQUEL [Concomitant]
     Route: 048
  2. LAMICTAL [Suspect]
     Indication: BIPOLAR DISORDER
     Dosage: 78MGD PER DAY
     Route: 048
     Dates: start: 20110528, end: 20110618

REACTIONS (5)
  - MENINGITIS [None]
  - MENINGITIS ASEPTIC [None]
  - HEADACHE [None]
  - NEUROLOGICAL SYMPTOM [None]
  - RASH [None]
